FAERS Safety Report 7787499-8 (Version None)
Quarter: 2011Q3

REPORT INFORMATION
  Report Type: 
  Country: None (occurrence: None)
  Receive Date: 20110929
  Receipt Date: 20110927
  Transmission Date: 20111222
  Serious: No
  Sender: FDA-Public Use
  Company Number: US-B.I. PHARMACEUTICALS,INC./RIDGEFIELD-2011-BP-22962BP

PATIENT
  Age: 70 Year
  Sex: Male

DRUGS (1)
  1. TRADJENTA [Suspect]
     Indication: DIABETES MELLITUS

REACTIONS (1)
  - DYSPNOEA [None]
